FAERS Safety Report 15221142 (Version 11)
Quarter: 2020Q2

REPORT INFORMATION
  Report Type: Spontaneous
  Country: PT (occurrence: PT)
  Receive Date: 20180731
  Receipt Date: 20200625
  Transmission Date: 20200713
  Serious: Yes (Life-Threatening, Hospitalization, Other)
  Sender: FDA-Public Use
  Company Number: PT-AUROBINDO-AUR-APL-2018-038679

PATIENT
  Age: 48 Year
  Sex: Female
  Weight: 77 kg

DRUGS (37)
  1. ORLISTAT CAPSULES [Interacting]
     Active Substance: ORLISTAT
     Indication: OVERWEIGHT
     Dosage: 50 MILLIGRAM 0.5 DAY
     Route: 065
  2. BUPROPION. [Interacting]
     Active Substance: BUPROPION
     Indication: WEIGHT DECREASED
     Dosage: 100 MILLIGRAM, TWO TIMES A DAY
     Route: 048
     Dates: start: 201708, end: 201804
  3. CASCARA [Interacting]
     Active Substance: RHAMNUS PURSHIANA BARK EXTRACT
     Indication: WEIGHT DECREASED
     Dosage: 2 MILLIGRAM, DAILY
     Route: 048
     Dates: start: 201708, end: 201804
  4. FUROSEMIDE. [Interacting]
     Active Substance: FUROSEMIDE
     Indication: WEIGHT DECREASED
     Dosage: 40 MILLIGRAM, TWO TIMES A DAY
     Route: 048
     Dates: start: 201708, end: 201804
  5. METFORMIN [Interacting]
     Active Substance: METFORMIN HYDROCHLORIDE
     Dosage: 200 MILLIGRAM, TWO TIMES A DAY
     Route: 065
  6. MINULET [Interacting]
     Active Substance: ETHINYL ESTRADIOL\GESTODENE
     Indication: ORAL CONTRACEPTION
     Dosage: 1 DOSAGE FORM, ONCE A DAY (FIVE MONTHS PREVIOUSLY)
     Route: 048
     Dates: start: 201711
  7. CHLORDIAZEPOXIDE. [Interacting]
     Active Substance: CHLORDIAZEPOXIDE
     Indication: WEIGHT DECREASED
     Dosage: 10 MILLIGRAM, TWO TIMES A DAY
     Route: 048
     Dates: start: 201708, end: 201804
  8. CHLORDIAZEPOXIDE. [Interacting]
     Active Substance: CHLORDIAZEPOXIDE
     Indication: OVERWEIGHT
     Dosage: 10 MILLIGRAM, ONCE A DAY
     Route: 048
     Dates: start: 201708, end: 201804
  9. PHENOLPHTHALEIN [Interacting]
     Active Substance: PHENOLPHTHALEIN
     Indication: WEIGHT DECREASED
     Dosage: 80 MILLIGRAM, TWO TIMES A DAY
     Route: 048
     Dates: start: 201708
  10. PHENOLPHTHALEIN [Interacting]
     Active Substance: PHENOLPHTHALEIN
     Dosage: 80 MILLIGRAM 0.5 DAY
     Route: 065
  11. TRIGYNERA [Suspect]
     Active Substance: ETHINYL ESTRADIOL\GESTODENE
     Indication: CONTRACEPTION
     Dosage: UNK
     Route: 048
  12. CHROMIUM PICOLINATE [Interacting]
     Active Substance: CHROMIUM PICOLINATE
     Indication: OVERWEIGHT
     Dosage: 200 MILLIGRAM 0.5 DAY
     Route: 065
  13. METFORMIN [Interacting]
     Active Substance: METFORMIN HYDROCHLORIDE
     Indication: WEIGHT DECREASED
     Dosage: 400 MILLIGRAM, ONCE A DAY
     Route: 048
     Dates: start: 201708, end: 201804
  14. METFORMIN FILM-COATED TABLET [Suspect]
     Active Substance: METFORMIN HYDROCHLORIDE
     Indication: WEIGHT DECREASED
     Dosage: 400 MILLIGRAM, ONCE A DAY
     Route: 048
     Dates: start: 201708, end: 201804
  15. GESTODENE [Interacting]
     Active Substance: GESTODENE
     Indication: CONTRACEPTION
     Dosage: 0.8 MILLIGRAM
     Route: 048
  16. PHENOLPHTHALEIN [Interacting]
     Active Substance: PHENOLPHTHALEIN
     Dosage: 180 MILLIGRAM, ONCE A DAY
     Route: 048
     Dates: start: 201708, end: 201804
  17. TOPIRAMATE. [Interacting]
     Active Substance: TOPIRAMATE
     Dosage: 10 MILLIGRAM 0.5 DAY
     Route: 065
  18. FLECAINIDE [Concomitant]
     Active Substance: FLECAINIDE
     Indication: VENTRICULAR ARRHYTHMIA
     Dosage: 100 MILLIGRAM, ONCE A DAY
     Route: 048
     Dates: start: 201605
  19. BUPROPION. [Interacting]
     Active Substance: BUPROPION
     Dosage: 100 MILLIGRAM 0.5 DAY
     Route: 065
  20. ETHINYLESTRADIOL [Interacting]
     Active Substance: ETHINYL ESTRADIOL
     Indication: CONTRACEPTION
     Dosage: 0.03 MILLIGRAM
     Route: 048
  21. PHENOLPHTHALEIN [Interacting]
     Active Substance: PHENOLPHTHALEIN
     Dosage: 160 MILLIGRAM, ONCE A DAY
     Route: 048
     Dates: start: 201708, end: 201804
  22. TOPIRAMATE. [Interacting]
     Active Substance: TOPIRAMATE
     Indication: WEIGHT DECREASED
     Dosage: 10 MILLIGRAM, TWO TIMES A DAY
     Route: 048
     Dates: start: 201708, end: 201804
  23. TOPIRAMATE. [Interacting]
     Active Substance: TOPIRAMATE
     Indication: OVERWEIGHT
     Dosage: 20 MILLIGRAM, TWO TIMES A DAY
     Route: 048
     Dates: start: 201708, end: 201804
  24. XENICAL [Suspect]
     Active Substance: ORLISTAT
     Indication: WEIGHT DECREASED
     Dosage: 100 MILLIGRAM, ONCE A DAY
     Route: 048
  25. ORLISTAT CAPSULES [Interacting]
     Active Substance: ORLISTAT
     Indication: WEIGHT DECREASED
     Dosage: 50 MILLIGRAM, TWO TIMES A DAY
     Route: 048
     Dates: start: 201708, end: 201804
  26. METFORMIN FILM-COATED TABLET [Suspect]
     Active Substance: METFORMIN HYDROCHLORIDE
     Indication: OVERWEIGHT
     Dosage: 200 MILLIGRAM 0.5 DAY
     Route: 065
  27. CHROMIUM PICOLINATE [Interacting]
     Active Substance: CHROMIUM PICOLINATE
     Indication: WEIGHT DECREASED
     Dosage: 200 MICROGRAM, TWO TIMES A DAY
     Route: 048
     Dates: start: 201708
  28. FUROSEMIDE. [Interacting]
     Active Substance: FUROSEMIDE
     Indication: OVERWEIGHT
     Dosage: 80 MILLIGRAM, ONCE A DAY
     Route: 065
  29. FUROSEMIDE. [Interacting]
     Active Substance: FUROSEMIDE
     Dosage: 40 MILLIGRAM 0.5DAY
     Route: 065
  30. FLECAINIDE [Concomitant]
     Active Substance: FLECAINIDE
     Indication: VENTRICULAR EXTRASYSTOLES
     Dosage: 100 MILLIGRAM
     Route: 048
     Dates: start: 20160120
  31. BUPROPION. [Interacting]
     Active Substance: BUPROPION
     Indication: OVERWEIGHT
     Dosage: 100 MILLIGRAM, TWO TIMES A DAY
     Route: 048
     Dates: start: 201708, end: 201804
  32. CENTELLA ASIATICA NH [Interacting]
     Active Substance: CENTELLA ASIATICA\HERBALS
     Indication: WEIGHT DECREASED
     Dosage: 200 MILLIGRAM, TWO TIMES A DAY
     Route: 048
     Dates: start: 201708, end: 201804
  33. FRANGULA PURSHIANA [Suspect]
     Active Substance: HERBALS
     Indication: WEIGHT DECREASED
     Dosage: 40 MILLIGRAM, TWO TIMES A DAY
     Route: 065
  34. CASCARA [Interacting]
     Active Substance: RHAMNUS PURSHIANA BARK EXTRACT
     Dosage: 200 MILLIGRAM, DAILY
     Route: 048
     Dates: start: 201708
  35. CHLORDIAZEPOXIDE. [Interacting]
     Active Substance: CHLORDIAZEPOXIDE
     Dosage: 10 MILLIGRAM 0.5 DAY
     Route: 065
  36. SENNA ALEXANDRINA [Suspect]
     Active Substance: SENNA LEAF
     Indication: WEIGHT DECREASED
     Dosage: 20 MILLIGRAM, TWO TIMES A DAY
     Route: 065
  37. SENNOSIDE A+B [Suspect]
     Active Substance: SENNOSIDES A AND B
     Indication: WEIGHT CONTROL
     Dosage: 20 MILLIGRAM, TWO TIMES A DAY
     Route: 065

REACTIONS (13)
  - Product use in unapproved indication [Unknown]
  - Fatigue [Recovering/Resolving]
  - Psychomotor retardation [Recovering/Resolving]
  - Cerebral venous thrombosis [Recovered/Resolved]
  - Thalamic infarction [Recovered/Resolved]
  - Bradyphrenia [Recovered/Resolved]
  - Off label use [Unknown]
  - Headache [Recovered/Resolved]
  - Intentional product misuse [Unknown]
  - Speech disorder [Recovered/Resolved]
  - Slow response to stimuli [Recovering/Resolving]
  - Drug interaction [Unknown]
  - Disorientation [Recovered/Resolved]

NARRATIVE: CASE EVENT DATE: 201708
